FAERS Safety Report 13776594 (Version 2)
Quarter: 2017Q3

REPORT INFORMATION
  Report Type: Spontaneous
  Country: GB (occurrence: GB)
  Receive Date: 20170721
  Receipt Date: 20170811
  Transmission Date: 20171127
  Serious: Yes (Hospitalization, Other)
  Sender: FDA-Public Use
  Company Number: GB-PFIZER INC-2017312902

PATIENT
  Age: 61 Year
  Sex: Female

DRUGS (6)
  1. CARBOPLATIN. [Suspect]
     Active Substance: CARBOPLATIN
     Dosage: SECOND CYCLE
     Dates: start: 20170623, end: 20170623
  2. PACLITAXEL. [Suspect]
     Active Substance: PACLITAXEL
     Dosage: SECOND CYCLE
     Dates: start: 20170623, end: 20170623
  3. PACLITAXEL. [Suspect]
     Active Substance: PACLITAXEL
     Indication: OVARIAN CANCER
     Dosage: ONCE WEEKLY
     Route: 065
     Dates: start: 20170616
  4. AVASTIN [Suspect]
     Active Substance: BEVACIZUMAB
     Dosage: SECOND CYCLE
     Dates: start: 20170623, end: 20170623
  5. CARBOPLATIN. [Suspect]
     Active Substance: CARBOPLATIN
     Indication: OVARIAN CANCER
     Dosage: ONCE WEEKLY
     Route: 065
     Dates: start: 20170616
  6. AVASTIN [Suspect]
     Active Substance: BEVACIZUMAB
     Indication: OVARIAN CANCER
     Dosage: ONCE A WEEK
     Route: 065
     Dates: start: 20170616

REACTIONS (3)
  - Tunnel vision [Unknown]
  - Cerebrovascular accident [Unknown]
  - Haemorrhage [Unknown]

NARRATIVE: CASE EVENT DATE: 20170616
